FAERS Safety Report 6915255-9 (Version None)
Quarter: 2010Q3

REPORT INFORMATION
  Report Type: 
  Country: None (occurrence: None)
  Receive Date: 20100809
  Receipt Date: 20090920
  Transmission Date: 20110219
  Serious: No
  Sender: FDA-Public Use
  Company Number: US-ABBOTT-09P-163-0598557-00

PATIENT
  Sex: Male

DRUGS (3)
  1. DEPAKOTE ER [Suspect]
     Indication: BIPOLAR DISORDER
     Route: 048
     Dates: start: 20090801, end: 20090914
  2. DEPAKOTE ER [Suspect]
     Indication: MANIA
     Route: 048
     Dates: start: 20090914
  3. DEPAKOTE ER [Suspect]
     Indication: DEPRESSION

REACTIONS (7)
  - ABNORMAL DREAMS [None]
  - AGGRESSION [None]
  - ANGER [None]
  - DEPRESSED MOOD [None]
  - DRUG LEVEL BELOW THERAPEUTIC [None]
  - DYSKINESIA [None]
  - SOMNOLENCE [None]
